FAERS Safety Report 9319455 (Version 4)
Quarter: 2013Q3

REPORT INFORMATION
  Report Type: Spontaneous
  Country: MY (occurrence: None)
  Receive Date: 20130528
  Receipt Date: 20130705
  Transmission Date: 20140515
  Serious: Yes (Hospitalization)
  Sender: FDA-Public Use
  Company Number: 1719021

PATIENT
  Age: 66 Year
  Sex: Female
  Weight: 55 kg

DRUGS (16)
  1. VINCRISTINE SULFATE [Suspect]
     Indication: DIFFUSE LARGE B-CELL LYMPHOMA
     Route: 042
     Dates: start: 20130430
  2. DOXORUBICIN HYDROCHLORIDE [Suspect]
     Indication: DIFFUSE LARGE B-CELL LYMPHOMA
     Route: 042
     Dates: start: 20120430
  3. RITUXIMAB [Suspect]
     Indication: DIFFUSE LARGE B-CELL LYMPHOMA
     Route: 042
     Dates: start: 20130430
  4. CYCLOPHOSPHAMIDE [Suspect]
     Indication: DIFFUSE LARGE B-CELL LYMPHOMA
     Route: 042
     Dates: start: 20130430
  5. PREDNISOLONE [Suspect]
     Indication: DIFFUSE LARGE B-CELL LYMPHOMA
     Route: 048
     Dates: start: 20130430
  6. (PROMETHAZINE HYDROCHLORIDE) [Concomitant]
  7. (GRANISETRON HYDROCHLORIDE) [Concomitant]
  8. (FLUCONAZOLE) [Concomitant]
  9. (NYSTATIN) [Concomitant]
  10. (ALLOPURINOL) [Concomitant]
  11. (PARACETAMOL) [Concomitant]
  12. (METOCLOPRAMIDE HYDROCHLORIDE) [Concomitant]
  13. (AMPICILLIN SODIUM W/SULBACTAM SODIUM) [Concomitant]
  14. PREDNISOLONE [Concomitant]
  15. FLUOROQUINOLONES [Concomitant]
  16. PIPERACILLIN AND TAZOBACTAM [Concomitant]

REACTIONS (1)
  - Neutropenic sepsis [None]
